FAERS Safety Report 6212067-9 (Version None)
Quarter: 2009Q2

REPORT INFORMATION
  Report Type: 
  Country: None (occurrence: None)
  Receive Date: 20090602
  Receipt Date: 20090521
  Transmission Date: 20091009
  Serious: Yes (Death, Hospitalization, Other)
  Sender: FDA-Public Use
  Company Number: JP-PFIZER INC-2008157267

PATIENT
  Age: 85 Year

DRUGS (10)
  1. SILDENAFIL CITRATE [Suspect]
     Indication: PULMONARY HYPERTENSION
     Dosage: UNK
     Route: 048
     Dates: end: 20081213
  2. MUCODYNE [Concomitant]
     Dosage: UNK
     Route: 048
     Dates: end: 20081212
  3. ATARAX [Concomitant]
     Dosage: UNK
     Route: 048
     Dates: end: 20081212
  4. SENNOSIDES [Concomitant]
     Dosage: UNK
     Route: 048
     Dates: end: 20081212
  5. LASIX [Concomitant]
     Dosage: UNK
     Route: 048
     Dates: end: 20081212
  6. HOKUNALIN [Concomitant]
     Dosage: UNK
     Route: 062
     Dates: end: 20081212
  7. PROSTAL [Concomitant]
     Route: 048
  8. VASOLAN [Concomitant]
     Route: 042
     Dates: start: 20081212
  9. ROCEPHIN [Concomitant]
     Route: 042
     Dates: start: 20081212
  10. MINOCYCLINE [Concomitant]
     Route: 042
     Dates: start: 20081212

REACTIONS (5)
  - ATRIAL FIBRILLATION [None]
  - BLOOD PRESSURE INCREASED [None]
  - INTERSTITIAL LUNG DISEASE [None]
  - RESPIRATORY FAILURE [None]
  - TACHYCARDIA [None]
